FAERS Safety Report 7828000-X (Version None)
Quarter: 2011Q4

REPORT INFORMATION
  Report Type: 
  Country: None (occurrence: None)
  Receive Date: 20111020
  Receipt Date: 20111012
  Transmission Date: 20120403
  Serious: Yes (Hospitalization)
  Sender: FDA-Public Use
  Company Number: US-GLAXOSMITHKLINE-A0845689A

PATIENT
  Age: 69 Year
  Sex: Female
  Weight: 108.2 kg

DRUGS (8)
  1. SYNTHROID [Concomitant]
  2. LEVBID [Concomitant]
  3. TRIAMTERENE [Concomitant]
  4. PAXIL [Concomitant]
  5. LOPRESSOR [Concomitant]
  6. AVANDIA [Suspect]
     Indication: DIABETES MELLITUS
     Dosage: 4MG TWICE PER DAY
     Route: 048
     Dates: start: 20020107, end: 20070101
  7. DYAZIDE [Concomitant]
  8. ZETIA [Concomitant]

REACTIONS (3)
  - PULMONARY HYPERTENSION [None]
  - CARDIAC FAILURE CONGESTIVE [None]
  - CARDIAC FAILURE [None]
